FAERS Safety Report 6499175-2 (Version None)
Quarter: 2009Q4

REPORT INFORMATION
  Report Type: 
  Country: None (occurrence: None)
  Receive Date: 20091215
  Receipt Date: 20091207
  Transmission Date: 20100525
  Serious: Yes (Death, Hospitalization, Other)
  Sender: FDA-Public Use
  Company Number: US-ELI_LILLY_AND_COMPANY-US200912001734

PATIENT
  Sex: Female

DRUGS (5)
  1. HUMULIN R [Suspect]
     Indication: BLOOD GLUCOSE INCREASED
     Dosage: UNK, EACH MORNING
  2. HUMULIN R [Suspect]
     Dosage: UNK, AS NEEDED
  3. HUMULIN N [Suspect]
     Indication: DIABETES MELLITUS
     Dosage: UNK, EACH MORNING
  4. FOSAMAX [Concomitant]
  5. TOPROL-XL [Concomitant]

REACTIONS (8)
  - BLOOD GLUCOSE INCREASED [None]
  - CORONARY ARTERY BYPASS [None]
  - DEMENTIA [None]
  - DEMENTIA ALZHEIMER'S TYPE [None]
  - DRUG INEFFECTIVE [None]
  - HOSPITALISATION [None]
  - KNEE ARTHROPLASTY [None]
  - LUNG NEOPLASM MALIGNANT [None]
